FAERS Safety Report 25319720 (Version 1)
Quarter: 2025Q2

REPORT INFORMATION
  Report Type: Spontaneous
  Country: ES (occurrence: ES)
  Receive Date: 20250515
  Receipt Date: 20250515
  Transmission Date: 20250717
  Serious: Yes (Hospitalization)
  Sender: TEVA
  Company Number: None

PATIENT
  Age: 69 Year
  Sex: Male

DRUGS (4)
  1. ENALAPRIL\HYDROCHLOROTHIAZIDE [Suspect]
     Active Substance: ENALAPRIL\HYDROCHLOROTHIAZIDE
     Indication: Hypertension
     Dosage: 1 BREAKFAST; 20 MG/12.5 MG TABLET
     Route: 048
     Dates: start: 20220531, end: 20241215
  2. PSEUDOEPHEDRINE [Concomitant]
     Active Substance: PSEUDOEPHEDRINE
     Indication: Nasopharyngitis
     Dosage: 1 BREAKFAST, 1 DINNER
     Route: 048
     Dates: start: 20241104, end: 20241113
  3. MESALAMINE [Suspect]
     Active Substance: MESALAMINE
     Indication: Colitis ulcerative
     Dosage: GASTRO-RESISTANT EXTENDED-RELEASE TABLETS
     Route: 048
     Dates: start: 20240925, end: 20241215
  4. MESALAMINE [Suspect]
     Active Substance: MESALAMINE
     Indication: Colitis ulcerative
     Dosage: 4 TABLETS/DAY (BREAKFAST); GASTRO-RESISTANT EXTENDED-RELEASE TABLETS
     Route: 048
     Dates: start: 20170814, end: 20240925

REACTIONS (1)
  - Pancreatitis acute [Recovered/Resolved]

NARRATIVE: CASE EVENT DATE: 20241214
